FAERS Safety Report 5021212-2 (Version None)
Quarter: 2006Q2

REPORT INFORMATION
  Report Type: 
  Country: None (occurrence: None)
  Receive Date: 20060608
  Receipt Date: 20060517
  Transmission Date: 20061013
  Serious: Yes (Hospitalization)
  Sender: FDA-Public Use
  Company Number: US-BOEHRINGER INGELHEIM PHARMACEUTICALS, INC.-2006-BP-05578BP

PATIENT
  Age: 73 Year
  Sex: Female

DRUGS (10)
  1. ATROVENT [Suspect]
     Indication: CHRONIC OBSTRUCTIVE PULMONARY DISEASE
     Route: 055
     Dates: start: 20000101, end: 20000101
  2. QVAR 80 [Concomitant]
  3. ELAVIL [Concomitant]
  4. ACCOLATE [Concomitant]
  5. ALDACTONE [Concomitant]
  6. XANAX [Concomitant]
  7. QUININE SULFATE [Concomitant]
  8. FOSAMAX [Concomitant]
  9. LEVOTHROID [Concomitant]
  10. VITAMINS [Concomitant]

REACTIONS (3)
  - BRONCHOSPASM [None]
  - DYSPNOEA [None]
  - LARYNGOSPASM [None]
